FAERS Safety Report 16534032 (Version 1)
Quarter: 2019Q3

REPORT INFORMATION
  Report Type: Spontaneous
  Country: MX (occurrence: MX)
  Receive Date: 20190705
  Receipt Date: 20190705
  Transmission Date: 20191004
  Serious: Yes (Other)
  Sender: FDA-Public Use
  Company Number: MX-IPSEN BIOPHARMACEUTICALS, INC.-2019-11621

PATIENT
  Age: 19 Year
  Sex: Male

DRUGS (2)
  1. BOTULINUM TOXIN TYPE A NOS [Suspect]
     Active Substance: BOTULINUM TOXIN TYPE A
     Indication: OFF LABEL USE
  2. BOTULINUM TOXIN TYPE A NOS [Suspect]
     Active Substance: BOTULINUM TOXIN TYPE A
     Indication: VITH NERVE PARALYSIS
     Dosage: 15 IU
     Route: 030

REACTIONS (3)
  - Off label use [Unknown]
  - Retinal tear [Recovered/Resolved]
  - Retinal detachment [Recovered/Resolved]
